FAERS Safety Report 18477946 (Version 1)
Quarter: 2020Q4

REPORT INFORMATION
  Report Type: Report from Study
  Country: None (occurrence: US)
  Receive Date: 20201108
  Receipt Date: 20201108
  Transmission Date: 20210114
  Serious: Yes (Hospitalization, Other)
  Sender: FDA-Public Use
  Company Number: US-ABBVIE-20K-163-3607545-00

PATIENT
  Age: 67 Year
  Sex: Male
  Weight: 96.25 kg

DRUGS (7)
  1. HUMIRA [Suspect]
     Active Substance: ADALIMUMAB
     Indication: UVEITIS
     Route: 058
  2. HUMIRA [Suspect]
     Active Substance: ADALIMUMAB
     Indication: UVEITIS
     Route: 058
     Dates: start: 2015, end: 20201001
  3. HUMIRA [Suspect]
     Active Substance: ADALIMUMAB
     Route: 058
     Dates: start: 20201021
  4. GABAPENTIN. [Concomitant]
     Active Substance: GABAPENTIN
     Indication: NEUROPATHY PERIPHERAL
  5. METHOTREXATE. [Concomitant]
     Active Substance: METHOTREXATE
     Indication: UVEITIS
  6. HYDROCORTISONE. [Concomitant]
     Active Substance: HYDROCORTISONE
     Indication: UVEITIS
  7. LEVOTHYROXINE. [Concomitant]
     Active Substance: LEVOTHYROXINE
     Indication: HYPOTHYROIDISM

REACTIONS (13)
  - Confusional state [Recovered/Resolved]
  - Blood pressure decreased [Recovering/Resolving]
  - Viral infection [Unknown]
  - Pulmonary sarcoidosis [Recovering/Resolving]
  - Thrombosis [Recovering/Resolving]
  - Pulmonary embolism [Unknown]
  - Hypotension [Unknown]
  - Thrombosis [Recovering/Resolving]
  - Cerebral disorder [Unknown]
  - Ocular sarcoidosis [Recovering/Resolving]
  - Fall [Recovered/Resolved]
  - Cerebrovascular accident [Recovering/Resolving]
  - Neuropathy peripheral [Recovering/Resolving]

NARRATIVE: CASE EVENT DATE: 2014
